FAERS Safety Report 15020608 (Version 1)
Quarter: 2018Q2

REPORT INFORMATION
  Report Type: Spontaneous
  Country: US (occurrence: US)
  Receive Date: 20180618
  Receipt Date: 20180618
  Transmission Date: 20180711
  Serious: No
  Sender: FDA-Public Use
  Company Number: US-MALLINCKRODT-T201800728

PATIENT
  Sex: Female

DRUGS (1)
  1. HYDROCODONE/ACETAMINOPHEN [Suspect]
     Active Substance: ACETAMINOPHEN\HYDROCODONE
     Indication: PAIN
     Dosage: 5/325 MG, EVERY 6 HOURS AS NEEDED
     Route: 048
     Dates: start: 20180208, end: 20180209

REACTIONS (3)
  - Constipation [Recovered/Resolved]
  - Chromaturia [Unknown]
  - Abdominal pain upper [Not Recovered/Not Resolved]
